FAERS Safety Report 5190191-X (Version None)
Quarter: 2006Q4

REPORT INFORMATION
  Report Type: 
  Country: None (occurrence: None)
  Receive Date: 20061222
  Receipt Date: 20060811
  Transmission Date: 20070319
  Serious: No
  Sender: FDA-Public Use
  Company Number: US-AMGEN-KDL189730

PATIENT
  Sex: Male

DRUGS (8)
  1. ARANESP [Suspect]
     Indication: ANAEMIA
     Dates: start: 20040101
  2. INSULIN HUMULIN L [Concomitant]
  3. GLUCOTROL [Concomitant]
  4. CELEBREX [Concomitant]
  5. FOLIC ACID [Concomitant]
  6. LASIX [Concomitant]
  7. TYLENOL [Concomitant]
  8. AVANDIA [Concomitant]

REACTIONS (1)
  - HAEMOGLOBIN DECREASED [None]
